FAERS Safety Report 9260313 (Version 2)
Quarter: 2013Q2

REPORT INFORMATION
  Report Type: Spontaneous
  Country: JP (occurrence: JP)
  Receive Date: 20130429
  Receipt Date: 20130514
  Transmission Date: 20140414
  Serious: Yes (Other)
  Sender: FDA-Public Use
  Company Number: PHHY2013JP040391

PATIENT
  Age: 83 Year
  Sex: Male

DRUGS (6)
  1. EXELON PATCH [Suspect]
     Indication: DEMENTIA ALZHEIMER^S TYPE
     Dosage: 4.5 MG, DAILY
     Route: 062
     Dates: start: 20130302
  2. EXELON PATCH [Suspect]
     Dosage: 9 MG, DAILY
     Route: 062
  3. PERSANTIN [Concomitant]
     Dosage: 300 MG, UNK
     Route: 048
  4. HUMULIN R [Concomitant]
     Dosage: 12 IU, UNK
     Route: 048
  5. LANTUS [Concomitant]
     Dosage: 4 IU, UNK
     Route: 048
  6. LANTUS [Concomitant]
     Dosage: 6 UNK, UNK
     Route: 048

REACTIONS (1)
  - Blood glucose fluctuation [Recovering/Resolving]
